FAERS Safety Report 22281716 (Version 1)
Quarter: 2023Q2

REPORT INFORMATION
  Report Type: Spontaneous
  Country: GB (occurrence: GB)
  Receive Date: 20230504
  Receipt Date: 20230504
  Transmission Date: 20230722
  Serious: Yes (Disabling)
  Sender: FDA-Public Use
  Company Number: GB-MHRA-MED-202304271036515730-LWYHR

PATIENT
  Age: 20 Year
  Sex: Female

DRUGS (1)
  1. NEXPLANON [Suspect]
     Active Substance: ETONOGESTREL
     Indication: Contraceptive implant
     Dosage: UNK; PHARMACEUTICAL FORM REPORTED AS INJECTION
     Dates: start: 20211210, end: 20220621

REACTIONS (2)
  - Medication error [Unknown]
  - Anxiety [Recovered/Resolved]
